FAERS Safety Report 25495501 (Version 1)
Quarter: 2025Q2

REPORT INFORMATION
  Report Type: Spontaneous
  Country: US (occurrence: US)
  Receive Date: 20250630
  Receipt Date: 20250630
  Transmission Date: 20250717
  Serious: No
  Sender: MERCK SHARP & DOHME LLC
  Company Number: US-009507513-2296154

PATIENT
  Sex: Female

DRUGS (2)
  1. KEYTRUDA [Suspect]
     Active Substance: PEMBROLIZUMAB
     Indication: Lung neoplasm malignant
     Route: 065
  2. antibiotics (NOS) [Concomitant]
     Indication: Sinusitis

REACTIONS (3)
  - Wheezing [Unknown]
  - Fatigue [Unknown]
  - Cough [Unknown]
